FAERS Safety Report 9263117 (Version 1)
Quarter: 2013Q2

REPORT INFORMATION
  Report Type: Spontaneous
  Country: US (occurrence: US)
  Receive Date: 20130430
  Receipt Date: 20130430
  Transmission Date: 20140414
  Serious: No
  Sender: FDA-Public Use
  Company Number: US-009507513-1304USA004765

PATIENT
  Age: 43 Year
  Sex: Female

DRUGS (1)
  1. IMPLANON [Suspect]
     Dosage: UNK
     Dates: start: 2006

REACTIONS (4)
  - Implant site pain [Unknown]
  - Implant site haemorrhage [Unknown]
  - Implant site scar [Recovered/Resolved]
  - Device difficult to use [Unknown]
